FAERS Safety Report 5940513-4 (Version None)
Quarter: 2008Q4

REPORT INFORMATION
  Report Type: 
  Country: None (occurrence: None)
  Receive Date: 20081103
  Receipt Date: 20081103
  Transmission Date: 20090506
  Serious: No
  Sender: FDA-Public Use
  Company Number: None

PATIENT
  Age: 49 Year

DRUGS (2)
  1. DEPAKOTE [Suspect]
     Dosage: CAPSULE, DELAYED RELEASE
  2. DEPAKOTE ER [Suspect]
     Dosage: TABLET, EXTENDED RELEASE 500 MG

REACTIONS (2)
  - DRUG DISPENSING ERROR [None]
  - MEDICATION ERROR [None]
